FAERS Safety Report 8069957-4 (Version None)
Quarter: 2012Q1

REPORT INFORMATION
  Report Type: 
  Country: None (occurrence: None)
  Receive Date: 20120125
  Receipt Date: 20110214
  Transmission Date: 20120608
  Serious: Yes (Other)
  Sender: FDA-Public Use
  Company Number: JP-ASTELLAS-2011JP001410

PATIENT
  Age: 76 Year
  Sex: Female

DRUGS (1)
  1. FUNGUARD [Suspect]
     Dosage: 100 MG, UNKNOWN/D
     Route: 041

REACTIONS (1)
  - ELECTROCARDIOGRAM QT PROLONGED [None]
